FAERS Safety Report 19446754 (Version 1)
Quarter: 2021Q2

REPORT INFORMATION
  Report Type: Spontaneous
  Country: US (occurrence: US)
  Receive Date: 20210620
  Receipt Date: 20210620
  Transmission Date: 20210717
  Serious: Yes (Death)
  Sender: FDA-Public Use
  Company Number: None

PATIENT
  Age: 23 Year
  Sex: Female
  Weight: 162 kg

DRUGS (12)
  1. NORETHINDRONE ACETATE 5MG PO DAILY [Concomitant]
  2. AIMOVIG 70 MG SC MONTHLY [Concomitant]
  3. LEVOTHYROXINE 25 MG PO DAILY [Concomitant]
  4. LATUDA 40 MG PO DAILY [Concomitant]
  5. CARBAMAZEPINE 400 MG ER BID [Concomitant]
  6. SUBLOCADE [Suspect]
     Active Substance: BUPRENORPHINE
     Indication: DRUG DEPENDENCE
     Dosage: OTHER FREQUENCY:EVERY 28 DAYS;?
     Route: 058
     Dates: start: 20210617
  7. METOPROLOL 25 MG PO BID [Concomitant]
  8. LITHIUM CARBONATE 300 MG PO BID [Concomitant]
  9. INVEGA SUSTENNA 234 MG SC MONTHLY [Concomitant]
  10. HUMIRA PEN 40 MG SC WEEKLY [Concomitant]
  11. DAPSONE 100 MG PO DAILY [Concomitant]
  12. ESOMEPRAZOLE 40MG TAB DAILY [Concomitant]

REACTIONS (3)
  - Nausea [None]
  - Dizziness [None]
  - Vomiting [None]

NARRATIVE: CASE EVENT DATE: 20210617
